FAERS Safety Report 17966311 (Version 1)
Quarter: 2020Q2

REPORT INFORMATION
  Report Type: Spontaneous
  Country: US (occurrence: US)
  Receive Date: 20200630
  Receipt Date: 20200630
  Transmission Date: 20200714
  Serious: Yes (Hospitalization, Other)
  Sender: FDA-Public Use
  Company Number: US-INSUD PHARMA-2006US00161

PATIENT

DRUGS (1)
  1. TESTOSTERONE. [Suspect]
     Active Substance: TESTOSTERONE
     Dosage: SELF-ADMINISTERED INJECTIONS
     Route: 030

REACTIONS (15)
  - Aortic aneurysm [Recovered/Resolved]
  - Back pain [Recovered/Resolved]
  - Gait disturbance [Recovered/Resolved]
  - Mitral valve incompetence [Recovered/Resolved]
  - Post procedural sepsis [Recovered/Resolved]
  - Muscular weakness [Recovered/Resolved]
  - Urinary retention [Recovered/Resolved]
  - Inadequate aseptic technique in use of product [Unknown]
  - Spinal cord abscess [Recovered/Resolved]
  - Intervertebral discitis [Recovered/Resolved]
  - Endocarditis [Recovered/Resolved]
  - Aortic injury [Recovered/Resolved]
  - Aortic dilatation [Recovered/Resolved]
  - Aortic valve incompetence [Recovered/Resolved]
  - Spinal cord compression [Recovered/Resolved]
